FAERS Safety Report 6464197-4 (Version None)
Quarter: 2009Q4

REPORT INFORMATION
  Report Type: 
  Country: None (occurrence: None)
  Receive Date: 20091201
  Receipt Date: 20091119
  Transmission Date: 20100525
  Serious: Yes (Other)
  Sender: FDA-Public Use
  Company Number: PHEH2009US16401

PATIENT
  Sex: Female

DRUGS (2)
  1. RECLAST [Suspect]
     Dosage: ONCE/SINGLE USE
     Dates: start: 20090704, end: 20090704
  2. ANTIHYPERTENSIVES [Concomitant]
     Dosage: UNK, UNK

REACTIONS (6)
  - ALOPECIA [None]
  - ARTHRALGIA [None]
  - DRY SKIN [None]
  - EYE PAIN [None]
  - EYE SWELLING [None]
  - MADAROSIS [None]
